FAERS Safety Report 4875040-9 (Version None)
Quarter: 2006Q1

REPORT INFORMATION
  Report Type: 
  Country: None (occurrence: None)
  Receive Date: 20060104
  Receipt Date: 20051222
  Transmission Date: 20060701
  Serious: Yes (Hospitalization)
  Sender: FDA-Public Use
  Company Number: 2005US001893

PATIENT
  Age: 42 Year
  Sex: Female
  Weight: 61 kg

DRUGS (1)
  1. PROGRAF [Suspect]
     Indication: PROPHYLAXIS AGAINST TRANSPLANT REJECTION
     Dosage: 6 MG, ORAL
     Route: 048
     Dates: start: 20051210

REACTIONS (5)
  - BACTERIAL INFECTION [None]
  - DIARRHOEA [None]
  - PYELONEPHRITIS [None]
  - PYREXIA [None]
  - VOMITING [None]
